FAERS Safety Report 23286882 (Version 1)
Quarter: 2023Q4

REPORT INFORMATION
  Report Type: Spontaneous
  Country: US (occurrence: None)
  Receive Date: 20231209
  Receipt Date: 20231209
  Transmission Date: 20240110
  Serious: Yes (Life-Threatening, Hospitalization)
  Sender: FDA-Public Use
  Company Number: None

PATIENT
  Age: 67 Year
  Sex: Male
  Weight: 156.6 kg

DRUGS (6)
  1. VYVGART [Suspect]
     Active Substance: EFGARTIGIMOD ALFA-FCAB
     Indication: Myasthenia gravis
     Dosage: 1200 MG WEEKLY INRAVENOUS?
     Route: 042
     Dates: start: 20231026, end: 20231115
  2. CORTEF [Suspect]
     Active Substance: HYDROCORTISONE
     Indication: Antiinflammatory therapy
     Dosage: 50 MG WEEKLY INTRAVENOUS?
     Route: 042
     Dates: start: 20231026, end: 20231115
  3. MESTINON [Concomitant]
     Active Substance: PYRIDOSTIGMINE BROMIDE
  4. IMURAN [Concomitant]
     Active Substance: AZATHIOPRINE
  5. MESTINON [Concomitant]
     Active Substance: PYRIDOSTIGMINE BROMIDE
  6. PREDNISONE [Concomitant]
     Active Substance: PREDNISONE

REACTIONS (2)
  - Cardiovascular disorder [None]
  - Infusion related reaction [None]

NARRATIVE: CASE EVENT DATE: 20231115
